FAERS Safety Report 6881374-9 (Version None)
Quarter: 2010Q3

REPORT INFORMATION
  Report Type: 
  Country: None (occurrence: None)
  Receive Date: 20100728
  Receipt Date: 20100728
  Transmission Date: 20110219
  Serious: Yes (Hospitalization)
  Sender: FDA-Public Use
  Company Number: None

PATIENT
  Age: 57 Year
  Sex: Female
  Weight: 52.1637 kg

DRUGS (2)
  1. KAPIDEX 60 MG TAKEDA PHARMACEUTICALS OF [Suspect]
     Indication: ABDOMINAL DISCOMFORT
     Dosage: TAKE ONE ONE TIME PER DAY PO
     Route: 048
     Dates: start: 20100705, end: 20100712
  2. KAPIDEX 60 MG TAKEDA PHARMACEUTICALS OF [Suspect]
     Indication: GASTROOESOPHAGEAL REFLUX DISEASE
     Dosage: TAKE ONE ONE TIME PER DAY PO
     Route: 048
     Dates: start: 20100705, end: 20100712

REACTIONS (3)
  - MIGRAINE [None]
  - NAUSEA [None]
  - VOMITING [None]
